FAERS Safety Report 9011795 (Version 3)
Quarter: 2013Q1

REPORT INFORMATION
  Report Type: Spontaneous
  Country: DE (occurrence: DE)
  Receive Date: 20130113
  Receipt Date: 20130221
  Transmission Date: 20140127
  Serious: Yes (Other)
  Sender: FDA-Public Use
  Company Number: DE-AMGEN-DEUSP2013001965

PATIENT
  Age: 59 Year
  Sex: Male
  Weight: 74 kg

DRUGS (9)
  1. ENBREL [Suspect]
     Indication: RHEUMATOID ARTHRITIS
     Dosage: 25 MG, WEEKLY
     Route: 058
     Dates: start: 20120516
  2. ENBREL [Suspect]
     Dosage: 50 MG, UNK
     Dates: start: 201207, end: 201211
  3. LYRICA [Suspect]
     Indication: SOMATOFORM DISORDER
     Dosage: UNK
  4. LYRICA [Suspect]
     Indication: PAIN
  5. CYMBALTA [Suspect]
     Indication: SOMATOFORM DISORDER
     Dosage: UNK
  6. CYMBALTA [Suspect]
     Indication: PAIN
  7. RESOCHIN [Concomitant]
     Indication: RHEUMATOID ARTHRITIS
     Dosage: 250 MG, 1X/DAY
     Route: 048
     Dates: start: 2010
  8. PREDNISOLON                        /00016201/ [Concomitant]
     Indication: RHEUMATOID ARTHRITIS
     Dosage: 5 MG, 1X/DAY
     Route: 048
     Dates: start: 2009
  9. DEKRISTOL [Concomitant]
     Indication: OSTEOPOROSIS
     Dosage: 20000 IU, MONTHLY
     Dates: start: 2012

REACTIONS (6)
  - Mobility decreased [Recovered/Resolved]
  - Inguinal hernia [Recovered/Resolved]
  - Somatoform disorder [Not Recovered/Not Resolved]
  - Pain [Not Recovered/Not Resolved]
  - Drug ineffective [Not Recovered/Not Resolved]
  - Drug intolerance [Unknown]
